FAERS Safety Report 20945757 (Version 1)
Quarter: 2022Q2

REPORT INFORMATION
  Report Type: Spontaneous
  Country: US (occurrence: US)
  Receive Date: 20220610
  Receipt Date: 20220610
  Transmission Date: 20220721
  Serious: No
  Sender: FDA-Public Use
  Company Number: US-PFIZER INC-202200819835

PATIENT
  Age: 37 Year
  Sex: Male
  Weight: 132 kg

DRUGS (1)
  1. BENZONATATE [Suspect]
     Active Substance: BENZONATATE
     Indication: Cough
     Dosage: UNK

REACTIONS (1)
  - Drug ineffective [Unknown]
